FAERS Safety Report 9449193 (Version 1)
Quarter: 2013Q3

REPORT INFORMATION
  Report Type: Spontaneous
  Country: US (occurrence: None)
  Receive Date: 20130806
  Receipt Date: 20130806
  Transmission Date: 20140515
  Serious: No
  Sender: FDA-Public Use
  Company Number: LIT-13-0028

PATIENT
  Age: 41 Year
  Sex: Male

DRUGS (1)
  1. LEVETIRACETAM [Suspect]

REACTIONS (3)
  - Overdose [None]
  - Vision blurred [None]
  - Ataxia [None]
